FAERS Safety Report 8455332-7 (Version None)
Quarter: 2012Q2

REPORT INFORMATION
  Report Type: 
  Country: None (occurrence: None)
  Receive Date: 20120614
  Receipt Date: 20120607
  Transmission Date: 20120825
  Serious: Yes (Hospitalization, Other)
  Sender: FDA-Public Use
  Company Number: 2012SP018707

PATIENT
  Age: 59 Year
  Sex: Male
  Weight: 64 kg

DRUGS (16)
  1. TELAVIC (ANTIVIRALS NOS) [Suspect]
     Indication: HEPATITIS C
     Dosage: 2250 MG;QD;PO
     Route: 048
     Dates: start: 20120306, end: 20120315
  2. DEPAS [Concomitant]
  3. ISOTONIC SODIUM CHLORIDE SOLUTION [Concomitant]
  4. HALCION [Concomitant]
  5. OLMETEC [Concomitant]
  6. ACETAMINOPHEN [Concomitant]
  7. XALATAN [Concomitant]
  8. VOLTAREN [Concomitant]
  9. LOXONIN [Concomitant]
  10. PEG-INTRON [Suspect]
     Indication: HEPATITIS C
     Dosage: 1.5 MCG/KG;QW;SC
     Route: 058
     Dates: start: 20120306, end: 20120313
  11. REBETOL [Suspect]
     Indication: HEPATITIS C
     Dosage: 800 MG;QD;PO, 600 MG;QD;PO
     Route: 048
     Dates: start: 20120306, end: 20120309
  12. REBETOL [Suspect]
     Indication: HEPATITIS C
     Dosage: 800 MG;QD;PO, 600 MG;QD;PO
     Route: 048
     Dates: start: 20120310, end: 20120315
  13. HALOPERIDOL [Concomitant]
  14. HEPAFLUSH [Concomitant]
  15. CARNACULIN /00088101/ [Concomitant]
  16. MUCOSTA [Concomitant]

REACTIONS (7)
  - SOMNOLENCE [None]
  - DAYDREAMING [None]
  - TOXICITY TO VARIOUS AGENTS [None]
  - RENAL TUBULAR NECROSIS [None]
  - DEHYDRATION [None]
  - HEADACHE [None]
  - RENAL FAILURE ACUTE [None]
